FAERS Safety Report 6275063-1 (Version None)
Quarter: 2009Q3

REPORT INFORMATION
  Report Type: 
  Country: None (occurrence: None)
  Receive Date: 20090721
  Receipt Date: 20090713
  Transmission Date: 20100115
  Serious: Yes (Death)
  Sender: FDA-Public Use
  Company Number: US-ROCHE-558101

PATIENT
  Sex: Female
  Weight: 71.7 kg

DRUGS (4)
  1. BONIVA [Suspect]
     Indication: OSTEOPENIA
     Route: 048
     Dates: start: 20070401
  2. HYZAAR [Concomitant]
     Indication: HYPERTENSION
  3. CLONIDINE [Concomitant]
     Indication: HYPERTENSION
  4. CADUET [Concomitant]
     Indication: HYPERTENSION
     Dosage: OTHER INDICATION: CHOLESTEROL

REACTIONS (4)
  - DEATH [None]
  - DYSPNOEA [None]
  - HEADACHE [None]
  - LUNG NEOPLASM MALIGNANT [None]
